FAERS Safety Report 6145497-4 (Version None)
Quarter: 2009Q2

REPORT INFORMATION
  Report Type: 
  Country: None (occurrence: None)
  Receive Date: 20090402
  Receipt Date: 20090324
  Transmission Date: 20091009
  Serious: Yes (Other)
  Sender: FDA-Public Use
  Company Number: 2009SP004711

PATIENT
  Age: 23 Year
  Sex: Female
  Weight: 67 kg

DRUGS (1)
  1. COPPERTONE LOTION SPF 15 (OCTINOXATE/OXYBENZONE) [Suspect]
     Indication: PROPHYLAXIS AGAINST SOLAR RADIATION
     Dosage: ; QD; TOP
     Route: 061
     Dates: start: 20090208, end: 20090208

REACTIONS (18)
  - ACTIVITIES OF DAILY LIVING IMPAIRED [None]
  - ANGER [None]
  - ANXIETY [None]
  - APPLICATION SITE ERYTHEMA [None]
  - APPLICATION SITE EXFOLIATION [None]
  - APPLICATION SITE PAPULES [None]
  - APPLICATION SITE PRURITUS [None]
  - APPLICATION SITE WARMTH [None]
  - CRYING [None]
  - DERMATITIS CONTACT [None]
  - EMOTIONAL DISORDER [None]
  - EMOTIONAL DISTRESS [None]
  - HYPERAESTHESIA [None]
  - IMMUNE SYSTEM DISORDER [None]
  - INSOMNIA [None]
  - NERVOUSNESS [None]
  - PHOTOSENSITIVITY REACTION [None]
  - RASH MACULAR [None]
